FAERS Safety Report 6035512-0 (Version None)
Quarter: 2009Q1

REPORT INFORMATION
  Report Type: 
  Country: None (occurrence: None)
  Receive Date: 20090112
  Receipt Date: 20090112
  Transmission Date: 20090719
  Serious: Yes (Hospitalization)
  Sender: FDA-Public Use
  Company Number: None

PATIENT
  Sex: Male
  Weight: 93.4 kg

DRUGS (5)
  1. CYCLOPHOSPHAMIDE [Suspect]
     Dosage: 1590 MG
     Dates: end: 20081219
  2. DOXORUBICIN HYDROCHLORIDE [Suspect]
     Dosage: 106 MG
     Dates: end: 20081219
  3. PREDNISONE TAB [Suspect]
     Dosage: 1000 MG
     Dates: end: 20081223
  4. RITUXIMAB (MOAB C2B8 ANTI CD20, CHIMERIC) [Suspect]
     Dosage: 800 MG
     Dates: end: 20081219
  5. VINCRISTINE SULFATE [Suspect]
     Dosage: 2 MG
     Dates: end: 20081219

REACTIONS (7)
  - ALVEOLITIS ALLERGIC [None]
  - BACTERIAL INFECTION [None]
  - CHEST PAIN [None]
  - DRUG HYPERSENSITIVITY [None]
  - DYSPNOEA EXERTIONAL [None]
  - INTERSTITIAL LUNG DISEASE [None]
  - VIRAL INFECTION [None]
